FAERS Safety Report 6291346-3 (Version None)
Quarter: 2009Q3

REPORT INFORMATION
  Report Type: 
  Country: None (occurrence: None)
  Receive Date: 20090730
  Receipt Date: 20090722
  Transmission Date: 20100115
  Serious: Yes (Hospitalization)
  Sender: FDA-Public Use
  Company Number: US-JNJFOC-20090401390

PATIENT
  Sex: Female
  Weight: 33.38 kg

DRUGS (18)
  1. INFLIXIMAB [Suspect]
     Indication: CROHN'S DISEASE
     Route: 042
  2. REMICADE [Suspect]
     Route: 042
  3. REMICADE [Suspect]
     Indication: CROHN'S DISEASE
     Route: 042
  4. PENTASA [Concomitant]
     Route: 048
  5. FERROUS SULFATE TAB [Concomitant]
     Route: 048
  6. ANTIBIOTICS [Concomitant]
     Indication: INFLAMMATORY BOWEL DISEASE
  7. NYSTATIN [Concomitant]
     Route: 061
  8. FISH OIL [Concomitant]
     Route: 048
  9. MULTI-VITAMIN [Concomitant]
     Route: 048
  10. ZINC SULFATE [Concomitant]
     Route: 048
  11. OMEGA 3 FATTY ACID [Concomitant]
  12. 5-AMINOSALICYLIC ACID [Concomitant]
     Route: 054
  13. KENALOG [Concomitant]
  14. KETOCONAZOLE [Concomitant]
  15. ZOSYN [Concomitant]
  16. LEVAQUIN [Concomitant]
  17. CEPHALEXIN [Concomitant]
  18. ACETAMINOPHEN W/ CODEINE TAB [Concomitant]

REACTIONS (3)
  - ANAPHYLACTIC REACTION [None]
  - INFUSION RELATED REACTION [None]
  - RETROPERITONEAL ABSCESS [None]
